FAERS Safety Report 17154739 (Version 6)
Quarter: 2020Q1

REPORT INFORMATION
  Report Type: Spontaneous
  Country: US (occurrence: US)
  Receive Date: 20191214
  Receipt Date: 20200222
  Transmission Date: 20200409
  Serious: No
  Sender: FDA-Public Use
  Company Number: US-UNITED THERAPEUTICS-UNT-2019-019951

PATIENT
  Sex: Female
  Weight: 57.6 kg

DRUGS (6)
  1. UPTRAVI [Suspect]
     Active Substance: SELEXIPAG
     Indication: PRODUCT USED FOR UNKNOWN INDICATION
     Dosage: 400 ?G, BID
     Route: 065
  2. TYVASO [Suspect]
     Active Substance: TREPROSTINIL
     Indication: PULMONARY ARTERIAL HYPERTENSION
     Dosage: 18-54 ?G, QID
     Dates: start: 20181214
  3. ADEMPAS [Suspect]
     Active Substance: RIOCIGUAT
     Indication: PRODUCT USED FOR UNKNOWN INDICATION
     Dosage: UNK
     Route: 065
  4. OPSUMIT [Concomitant]
     Active Substance: MACITENTAN
     Indication: PRODUCT USED FOR UNKNOWN INDICATION
     Dosage: UNK
     Route: 065
  5. UPTRAVI [Suspect]
     Active Substance: SELEXIPAG
     Dosage: 200 ?G (IN MORNING) AND 400 ?G (IN EVENING)
     Route: 065
  6. TYVASO [Suspect]
     Active Substance: TREPROSTINIL
     Dosage: UNK

REACTIONS (13)
  - Anxiety [Unknown]
  - Discomfort [Unknown]
  - Pain in extremity [Unknown]
  - Pain in jaw [Not Recovered/Not Resolved]
  - Treatment noncompliance [Unknown]
  - Drug tolerance decreased [Unknown]
  - Dry mouth [Recovering/Resolving]
  - Sinus congestion [Not Recovered/Not Resolved]
  - Myalgia [Not Recovered/Not Resolved]
  - Headache [Not Recovered/Not Resolved]
  - Arthralgia [Not Recovered/Not Resolved]
  - Nausea [Recovering/Resolving]
  - Pain [Unknown]
